FAERS Safety Report 9530259 (Version 1)
Quarter: 2013Q3

REPORT INFORMATION
  Report Type: Report from Study
  Country: BR (occurrence: BR)
  Receive Date: 20130917
  Receipt Date: 20130917
  Transmission Date: 20140515
  Serious: Yes (Hospitalization, Other)
  Sender: FDA-Public Use
  Company Number: PHHY2013BR103268

PATIENT
  Age: 77 Year
  Sex: Female

DRUGS (5)
  1. FORASEQ [Suspect]
     Indication: BRONCHITIS
     Dosage: 2 DF, QD
  2. ALENIA /01538101/ [Suspect]
     Dosage: UNK UKN, UNK
  3. SIMVASTIN [Concomitant]
     Dosage: UNK UKN, UNK
  4. ATENSINA [Concomitant]
     Dosage: UNK UKN, UNK
  5. ACETYLSALICYLIC ACID [Concomitant]
     Dosage: UNK UKN, UNK

REACTIONS (3)
  - Gastrointestinal infection [Recovered/Resolved]
  - Cataract [Not Recovered/Not Resolved]
  - Bronchitis [Unknown]
